FAERS Safety Report 10196275 (Version 1)
Quarter: 2014Q2

REPORT INFORMATION
  Report Type: Report from Study
  Country: US (occurrence: US)
  Receive Date: 20140527
  Receipt Date: 20140527
  Transmission Date: 20141212
  Serious: Yes (Hospitalization)
  Sender: FDA-Public Use
  Company Number: US-JNJFOC-20140512220

PATIENT
  Age: 86 Year
  Sex: Female
  Weight: 54.43 kg

DRUGS (11)
  1. REMICADE [Suspect]
     Indication: RHEUMATOID ARTHRITIS
     Route: 042
  2. LISINOPRIL [Suspect]
     Indication: HYPERTENSION
     Route: 048
     Dates: end: 201404
  3. LISINOPRIL [Suspect]
     Indication: HYPERTENSION
     Route: 048
     Dates: start: 201404
  4. METHOTREXATE [Concomitant]
     Indication: RHEUMATOID ARTHRITIS
     Route: 048
  5. PRAVASTATIN [Concomitant]
     Indication: BLOOD CHOLESTEROL
     Route: 048
     Dates: start: 2014
  6. PREDNISONE [Concomitant]
     Indication: RHEUMATOID ARTHRITIS
     Route: 048
  7. FOLIC ACID [Concomitant]
     Route: 048
  8. NEXIUM [Concomitant]
     Indication: PROPHYLAXIS
     Route: 048
  9. TRAMADOL [Concomitant]
     Indication: PAIN
     Route: 048
  10. TYLENOL EXTRA STRENGTH [Concomitant]
     Indication: HEADACHE
     Route: 048
  11. ACTONEL [Concomitant]
     Indication: BONE DISORDER
     Route: 048

REACTIONS (5)
  - Myocardial infarction [Recovered/Resolved]
  - Blood pressure increased [Recovered/Resolved]
  - Hypoacusis [Not Recovered/Not Resolved]
  - Drug ineffective [Not Recovered/Not Resolved]
  - Adverse event [Unknown]
